FAERS Safety Report 5883346-X (Version None)
Quarter: 2008Q3

REPORT INFORMATION
  Report Type: 
  Country: None (occurrence: None)
  Receive Date: 20080910
  Receipt Date: 20080903
  Transmission Date: 20090109
  Serious: Yes (Hospitalization)
  Sender: FDA-Public Use
  Company Number: 2008JP004030

PATIENT
  Age: 29 Year
  Sex: Male

DRUGS (1)
  1. FK506(ACROLIMUS) FORMULATION UKNOWN [Suspect]
     Indication: BONE MARROW TRANSPLANT
     Dosage: 6 MG, D, ORAL
     Route: 048
     Dates: start: 20080511

REACTIONS (3)
  - BLAST CELLS [None]
  - EYE SWELLING [None]
  - RECURRENT CANCER [None]
